FAERS Safety Report 7498823-8 (Version None)
Quarter: 2011Q2

REPORT INFORMATION
  Report Type: 
  Country: None (occurrence: None)
  Receive Date: 20110524
  Receipt Date: 20110511
  Transmission Date: 20111010
  Serious: Yes (Hospitalization)
  Sender: FDA-Public Use
  Company Number: JP-CTI_01352_2011

PATIENT
  Sex: Male
  Weight: 7.4 kg

DRUGS (1)
  1. MEIACT MS FINE GRANULES (CEFDITOREN PIVOXIL) [Suspect]
     Indication: BRONCHITIS
     Route: 048
     Dates: start: 20110420, end: 20110425

REACTIONS (9)
  - FLUID INTAKE REDUCED [None]
  - DIARRHOEA [None]
  - HEPATIC ENZYME INCREASED [None]
  - PRODUCT QUALITY ISSUE [None]
  - DRUG INEFFECTIVE [None]
  - PNEUMONIA [None]
  - DEHYDRATION [None]
  - WHITE BLOOD CELL COUNT INCREASED [None]
  - HEPATIC FUNCTION ABNORMAL [None]
